FAERS Safety Report 18309957 (Version 2)
Quarter: 2020Q4

REPORT INFORMATION
  Report Type: Spontaneous
  Country: US (occurrence: US)
  Receive Date: 20200924
  Receipt Date: 20201116
  Transmission Date: 20210113
  Serious: Yes (Hospitalization)
  Sender: FDA-Public Use
  Company Number: US-FARMAPROD-202007-0984

PATIENT
  Sex: Female

DRUGS (15)
  1. BACLOFEN. [Concomitant]
     Active Substance: BACLOFEN
  2. OXERVATE [Suspect]
     Active Substance: CENEGERMIN-BKBJ
     Indication: NEUROTROPHIC KERATOPATHY
     Route: 047
     Dates: start: 20200529, end: 202008
  3. SYNTHROID [Concomitant]
     Active Substance: LEVOTHYROXINE SODIUM
  4. RESTASIS [Concomitant]
     Active Substance: CYCLOSPORINE
  5. AZELASTINE/FLUTICASONE [Concomitant]
     Active Substance: AZELASTINE HYDROCHLORIDE\FLUTICASONE PROPIONATE
  6. DORZOLAMIDE/TIMOLOL [Concomitant]
     Active Substance: DORZOLAMIDE\TIMOLOL
  7. XANAX [Concomitant]
     Active Substance: ALPRAZOLAM
  8. DULOXETINE HCL [Concomitant]
     Active Substance: DULOXETINE HYDROCHLORIDE
     Dosage: DELAY RELEASE TABLET
  9. MONTELUKAST SODIUM. [Concomitant]
     Active Substance: MONTELUKAST SODIUM
  10. OXERVATE [Suspect]
     Active Substance: CENEGERMIN-BKBJ
     Route: 047
     Dates: start: 202008
  11. SIMVASTATIN. [Concomitant]
     Active Substance: SIMVASTATIN
  12. OSPHENA [Concomitant]
     Active Substance: OSPEMIFENE
  13. CARBAMAZEPINE. [Concomitant]
     Active Substance: CARBAMAZEPINE
     Dosage: EXTENDED RELEASE TABLET
  14. ACICLOVIR [Concomitant]
     Active Substance: ACYCLOVIR
  15. QUDEXY XR [Concomitant]
     Active Substance: TOPIRAMATE
     Dosage: CAPSULE SPR 24

REACTIONS (4)
  - Eye pain [Unknown]
  - Dry eye [Not Recovered/Not Resolved]
  - Lacrimation increased [Unknown]
  - Intestinal operation [Unknown]
